FAERS Safety Report 25632161 (Version 1)
Quarter: 2025Q3

REPORT INFORMATION
  Report Type: Report from Study
  Country: JP (occurrence: JP)
  Receive Date: 20250801
  Receipt Date: 20250801
  Transmission Date: 20251021
  Serious: Yes (Other)
  Sender: ACCORD
  Company Number: JP-Accord-498053

PATIENT
  Age: 16 Year
  Sex: Male
  Weight: 43.0 kg

DRUGS (1)
  1. DAPTOMYCIN [Suspect]
     Active Substance: DAPTOMYCIN
     Indication: Skin bacterial infection
     Dosage: OVERDOSE

REACTIONS (2)
  - Hepatic failure [Unknown]
  - Overdose [Unknown]
